FAERS Safety Report 18318568 (Version 1)
Quarter: 2020Q3

REPORT INFORMATION
  Report Type: Spontaneous
  Country: DE (occurrence: DE)
  Receive Date: 20200928
  Receipt Date: 20200928
  Transmission Date: 20201103
  Serious: Yes (Death, Hospitalization)
  Sender: FDA-Public Use
  Company Number: DE-TEVA-2020-DE-1831397

PATIENT
  Age: 96 Year
  Sex: Female
  Weight: 40 kg

DRUGS (7)
  1. TORASEMID [Interacting]
     Active Substance: TORSEMIDE
     Dosage: 2.5 MILLIGRAM DAILY;  1?0?0?0
     Route: 048
  2. MIRTAZAPIN [Concomitant]
     Active Substance: MIRTAZAPINE
     Dosage: .5 DOSAGE FORMS DAILY; 15 MG, 0?0?0?0.5
     Route: 048
  3. CARBIMAZOL [Concomitant]
     Active Substance: CARBIMAZOLE
     Dosage: 2 DOSAGE FORMS DAILY; 5 MG, 2?0?0?0
     Route: 048
  4. OXAZEPAM. [Suspect]
     Active Substance: OXAZEPAM
     Dosage: 10 MILLIGRAM DAILY; 0?0?0?1
     Route: 048
  5. PIPAMPERON [Interacting]
     Active Substance: PIPAMPERONE HYDROCHLORIDE
     Dosage: 15 ML DAILY; 20 || 5 MG / 5ML, 5?5?5?0, JUICE
     Route: 048
  6. PIPAMPERON [Interacting]
     Active Substance: PIPAMPERONE HYDROCHLORIDE
     Dosage: 20 || 5 MG / 5ML, REQUIREMENT, SOLUTION
     Route: 048
  7. ACETYLSALICYLSAEURE [Concomitant]
     Active Substance: ASPIRIN
     Dosage: 100 MILLIGRAM DAILY;  0?1?0?0
     Route: 048

REACTIONS (7)
  - General physical health deterioration [Unknown]
  - Dehydration [Unknown]
  - Labelled drug-drug interaction medication error [Unknown]
  - Hypokalaemia [Unknown]
  - Product monitoring error [Unknown]
  - Pyrexia [Unknown]
  - Product prescribing error [Unknown]
